FAERS Safety Report 11782217 (Version 2)
Quarter: 2016Q4

REPORT INFORMATION
  Report Type: Report from Study
  Country: US (occurrence: US)
  Receive Date: 20151127
  Receipt Date: 20161213
  Transmission Date: 20170206
  Serious: Yes (Other)
  Sender: FDA-Public Use
  Company Number: US-AMGEN-USASP2015124202

PATIENT
  Age: 62 Year
  Sex: Female

DRUGS (2)
  1. COQ10 [Concomitant]
     Active Substance: UBIDECARENONE
  2. PROLIA [Suspect]
     Active Substance: DENOSUMAB
     Indication: OSTEOPOROSIS POSTMENOPAUSAL
     Dosage: UNK UNK, Q6MO
     Route: 065
     Dates: start: 20151105

REACTIONS (12)
  - Arthralgia [Not Recovered/Not Resolved]
  - Gait disturbance [Unknown]
  - Kidney infection [Unknown]
  - Bone pain [Not Recovered/Not Resolved]
  - Musculoskeletal pain [Not Recovered/Not Resolved]
  - Blood urine present [Unknown]
  - Immune system disorder [Unknown]
  - Myalgia [Not Recovered/Not Resolved]
  - Pain in extremity [Not Recovered/Not Resolved]
  - Sleep disorder due to a general medical condition [Unknown]
  - Sneezing [Unknown]
  - Cystitis [Unknown]
